FAERS Safety Report 6569616-0 (Version None)
Quarter: 2010Q1

REPORT INFORMATION
  Report Type: 
  Country: None (occurrence: None)
  Receive Date: 20100203
  Receipt Date: 20100203
  Transmission Date: 20100710
  Serious: Yes (Other)
  Sender: FDA-Public Use
  Company Number: None

PATIENT
  Age: 17 Year
  Sex: Female
  Weight: 63.8 kg

DRUGS (1)
  1. HYDROCORTISONE 5MG TAB [Suspect]
     Indication: HEPATITIS CHRONIC ACTIVE
     Dosage: MG-10 TID PO
     Route: 048

REACTIONS (2)
  - NAUSEA [None]
  - PRODUCT SUBSTITUTION ISSUE [None]
